FAERS Safety Report 4490799-0 (Version None)
Quarter: 2004Q4

REPORT INFORMATION
  Report Type: 
  Country: None (occurrence: None)
  Receive Date: 20041102
  Receipt Date: 20041025
  Transmission Date: 20050328
  Serious: Yes (Life-Threatening, Hospitalization)
  Sender: FDA-Public Use
  Company Number: GB-ROCHE-384274

PATIENT
  Age: 54 Year
  Sex: Female
  Weight: 65 kg

DRUGS (9)
  1. ORLISTAT [Suspect]
     Indication: OBESITY
     Route: 048
     Dates: start: 20040317, end: 20041020
  2. NITRAZEPAM [Concomitant]
     Dates: start: 20030220
  3. DIAZEPAM [Concomitant]
     Dates: start: 20030220
  4. LANSOPRAZOLE [Concomitant]
     Dates: start: 20030220
  5. CITALOPRAM HYDROBROMIDE [Concomitant]
     Dates: start: 20030220
  6. AMLODIPINE [Concomitant]
     Dates: start: 20040906
  7. PARACETAMOL [Concomitant]
     Dates: start: 20040920
  8. SERETIDE [Concomitant]
     Dates: start: 20030624
  9. INFLUENZA VIRUS VACCINE [Concomitant]
     Dates: start: 20041012, end: 20041012

REACTIONS (1)
  - PNEUMONIA [None]
